FAERS Safety Report 11874022 (Version 1)
Quarter: 2015Q4

REPORT INFORMATION
  Report Type: Report from Study
  Country: FR (occurrence: FR)
  Receive Date: 20151229
  Receipt Date: 20151229
  Transmission Date: 20160305
  Serious: Yes (Other)
  Sender: FDA-Public Use
  Company Number: FR-ROCHE-1683746

PATIENT

DRUGS (1)
  1. VEMURAFENIB [Suspect]
     Active Substance: VEMURAFENIB
     Indication: MALIGNANT MELANOMA
     Route: 065

REACTIONS (25)
  - Eosinophilia [Unknown]
  - Photosensitivity reaction [Unknown]
  - Papilloma [Unknown]
  - Influenza like illness [Unknown]
  - Transaminases increased [Unknown]
  - Nausea [Unknown]
  - Anaemia [Unknown]
  - Face oedema [Unknown]
  - Diarrhoea [Unknown]
  - Dysgeusia [Unknown]
  - Lymphopenia [Unknown]
  - Keratoacanthoma [Unknown]
  - Pyrexia [Unknown]
  - Renal failure [Unknown]
  - Rash pustular [Unknown]
  - Thrombocytopenia [Unknown]
  - Keratosis pilaris [Unknown]
  - Alopecia [Unknown]
  - Squamous cell carcinoma of skin [Unknown]
  - Arthralgia [Unknown]
  - Vomiting [Unknown]
  - Cyst [Unknown]
  - Rash maculo-papular [Unknown]
  - Palmar-plantar erythrodysaesthesia syndrome [Unknown]
  - Basal cell carcinoma [Unknown]
